FAERS Safety Report 17994497 (Version 1)
Quarter: 2020Q3

REPORT INFORMATION
  Report Type: Spontaneous
  Country: US (occurrence: US)
  Receive Date: 20200708
  Receipt Date: 20200708
  Transmission Date: 20201103
  Serious: No
  Sender: FDA-Public Use
  Company Number: None

PATIENT
  Age: 32 Year
  Sex: Female
  Weight: 72 kg

DRUGS (9)
  1. ZYRTEC [Concomitant]
     Active Substance: CETIRIZINE HYDROCHLORIDE
  2. WELLBUTRIN [Concomitant]
     Active Substance: BUPROPION HYDROCHLORIDE
  3. NASAL SPRAY ?GENERIC FLONASE [Concomitant]
  4. ALBUTEROL INHALER PRN [Concomitant]
  5. GUARANA /01333101/ [Concomitant]
     Active Substance: HERBALS\PAULLINIA CUPANA SEED
  6. BUSPAR [Concomitant]
     Active Substance: BUSPIRONE HYDROCHLORIDE
  7. MIRENA [Concomitant]
     Active Substance: LEVONORGESTREL
  8. ZIPRASIDONE HCL 40MG CAPSULE [Suspect]
     Active Substance: ZIPRASIDONE HYDROCHLORIDE
     Indication: BIPOLAR DISORDER
     Dosage: ?          QUANTITY:1 CAPSULE(S);?
     Route: 048
     Dates: start: 20200701, end: 20200707
  9. VITAMIN D [Concomitant]
     Active Substance: VITAMIN D NOS

REACTIONS (10)
  - Agitation [None]
  - Dizziness [None]
  - Aggression [None]
  - Fatigue [None]
  - Asthenia [None]
  - Hyperhidrosis [None]
  - Nausea [None]
  - Constipation [None]
  - Mania [None]
  - Tremor [None]

NARRATIVE: CASE EVENT DATE: 20200705
